FAERS Safety Report 15170025 (Version 6)
Quarter: 2022Q2

REPORT INFORMATION
  Report Type: Spontaneous
  Country: US (occurrence: US)
  Receive Date: 20180720
  Receipt Date: 20220425
  Transmission Date: 20220720
  Serious: No
  Sender: FDA-Public Use
  Company Number: US-PFIZER INC-2018292232

PATIENT
  Age: 47 Year
  Sex: Female

DRUGS (1)
  1. PREGABALIN [Suspect]
     Active Substance: PREGABALIN
     Dosage: 50 MG, TWICE DAILY

REACTIONS (4)
  - Drug hypersensitivity [Unknown]
  - Rash [Recovered/Resolved]
  - Pruritus [Unknown]
  - Visual impairment [Unknown]

NARRATIVE: CASE EVENT DATE: 20150101
